FAERS Safety Report 21160483 (Version 1)
Quarter: 2022Q3

REPORT INFORMATION
  Report Type: Spontaneous
  Country: US (occurrence: US)
  Receive Date: 20220802
  Receipt Date: 20220802
  Transmission Date: 20221027
  Serious: No
  Sender: FDA-Public Use
  Company Number: US-AMNEAL PHARMACEUTICALS-2022-AMRX-01809

PATIENT
  Sex: Male

DRUGS (1)
  1. RISPERIDONE [Suspect]
     Active Substance: RISPERIDONE
     Indication: Tremor
     Dosage: UNK, 1 /DAY
     Route: 048

REACTIONS (3)
  - Tremor [Unknown]
  - Condition aggravated [Unknown]
  - Product use issue [Unknown]
